FAERS Safety Report 12984993 (Version 2)
Quarter: 2016Q4

REPORT INFORMATION
  Report Type: Spontaneous
  Country: US (occurrence: US)
  Receive Date: 20161129
  Receipt Date: 20161213
  Transmission Date: 20170207
  Serious: Yes (Hospitalization, Other)
  Sender: FDA-Public Use
  Company Number: US-PURDUE-USA-2016-0134067

PATIENT
  Age: 54 Year
  Sex: Female
  Weight: 108.84 kg

DRUGS (1)
  1. HYSINGLA ER [Suspect]
     Active Substance: HYDROCODONE BITARTRATE
     Indication: PAIN
     Dosage: UNK, Q24H
     Route: 048

REACTIONS (3)
  - Overdose [Unknown]
  - Dyspnoea [Recovered/Resolved]
  - Nervous system disorder [Recovered/Resolved]

NARRATIVE: CASE EVENT DATE: 20150327
